FAERS Safety Report 6654217-6 (Version None)
Quarter: 2010Q1

REPORT INFORMATION
  Report Type: 
  Country: None (occurrence: None)
  Receive Date: 20100326
  Receipt Date: 20100322
  Transmission Date: 20100710
  Serious: Yes (Death)
  Sender: FDA-Public Use
  Company Number: US-WATSON-2010-03603

PATIENT
  Age: 34 Year
  Sex: Female

DRUGS (9)
  1. PREDNISONE TAB [Suspect]
     Indication: DRUG USE FOR UNKNOWN INDICATION
  2. METOPROLOL (WATSON LABORATORIES) [Suspect]
     Indication: DRUG USE FOR UNKNOWN INDICATION
  3. OXYCODONE HYDROCHLORIDE/APAP UNKNOWN STRENGTH + FORMULATION (WATSON) [Suspect]
     Indication: DRUG USE FOR UNKNOWN INDICATION
  4. ZOLPIDEM TARTRATE [Suspect]
     Indication: DRUG USE FOR UNKNOWN INDICATION
  5. AMITRIPTYLINE [Suspect]
     Indication: DRUG USE FOR UNKNOWN INDICATION
  6. RABEPRAZOLE SODIUM [Suspect]
     Indication: DRUG USE FOR UNKNOWN INDICATION
  7. ANTIHISTAMINE ALLERGY RELIEF [Suspect]
     Indication: DRUG USE FOR UNKNOWN INDICATION
  8. VENLAFAXINE [Suspect]
     Indication: DRUG USE FOR UNKNOWN INDICATION
  9. ZAFIRLUKAST [Suspect]
     Indication: DRUG USE FOR UNKNOWN INDICATION

REACTIONS (1)
  - DEATH [None]
